FAERS Safety Report 21715980 (Version 2)
Quarter: 2024Q1

REPORT INFORMATION
  Report Type: Spontaneous
  Country: IT (occurrence: IT)
  Receive Date: 20221212
  Receipt Date: 20240130
  Transmission Date: 20240410
  Serious: Yes (Hospitalization, Other)
  Sender: FDA-Public Use
  Company Number: None

PATIENT
  Age: 26 Year
  Sex: Female

DRUGS (4)
  1. QUETIAPINE [Suspect]
     Active Substance: QUETIAPINE
     Indication: Product used for unknown indication
     Dosage: REFERRED VOLUNTARY INTAKE OF 2 PACKS OF QUETIAPINE
     Route: 048
     Dates: start: 20220925, end: 20220925
  2. XANAX [Suspect]
     Active Substance: ALPRAZOLAM
     Indication: Product used for unknown indication
     Dosage: REFERRED VOLUNTARY INTAKE OF 2 PACKS OF XANAX
     Route: 048
     Dates: start: 20220925, end: 20220925
  3. ZOLPIDEM TARTRATE [Suspect]
     Active Substance: ZOLPIDEM TARTRATE
     Indication: Product used for unknown indication
     Dosage: REFERRED VOLUNTARY INTAKE OF 3 PACKAGES OF STILNOX
     Route: 048
     Dates: start: 20220925, end: 20220925
  4. FLURAZEPAM HYDROCHLORIDE [Suspect]
     Active Substance: FLURAZEPAM HYDROCHLORIDE
     Indication: Product used for unknown indication
     Dosage: REFERRED VOLUNTARY INTAKE OF 2 PACKS OF DALMADORM
     Route: 048
     Dates: start: 20220925, end: 20220925

REACTIONS (6)
  - Skin abrasion [Not Recovered/Not Resolved]
  - Sopor [Not Recovered/Not Resolved]
  - Suicide attempt [Recovering/Resolving]
  - Somnolence [Not Recovered/Not Resolved]
  - Intentional overdose [Recovering/Resolving]
  - Drug abuse [Unknown]

NARRATIVE: CASE EVENT DATE: 20220925
